FAERS Safety Report 9883319 (Version 1)
Quarter: 2014Q1

REPORT INFORMATION
  Report Type: Spontaneous
  Country: DK (occurrence: DK)
  Receive Date: 20140210
  Receipt Date: 20140210
  Transmission Date: 20141002
  Serious: Yes (Hospitalization, Other)
  Sender: FDA-Public Use
  Company Number: DK-ROCHE-1345024

PATIENT
  Age: 57 Year
  Sex: Male

DRUGS (3)
  1. ROACTEMRA [Suspect]
     Indication: PRODUCT USED FOR UNKNOWN INDICATION
     Route: 065
     Dates: start: 201306
  2. ROACTEMRA [Suspect]
     Route: 065
     Dates: start: 201307
  3. ROACTEMRA [Suspect]
     Route: 065
     Dates: start: 201311

REACTIONS (8)
  - Infection [Unknown]
  - Hypertension [Unknown]
  - Hyperlipidaemia [Recovering/Resolving]
  - Fall [Unknown]
  - Dehydration [Unknown]
  - Gastritis [Unknown]
  - Paresis [Unknown]
  - Drug ineffective [Unknown]
